FAERS Safety Report 6248668-1 (Version None)
Quarter: 2009Q2

REPORT INFORMATION
  Report Type: 
  Country: None (occurrence: None)
  Receive Date: 20090625
  Receipt Date: 20090327
  Transmission Date: 20091009
  Serious: Yes (Hospitalization)
  Sender: FDA-Public Use
  Company Number: 2009IP000028

PATIENT
  Age: 83 Year
  Sex: Male
  Weight: 92.9874 kg

DRUGS (12)
  1. ISTALOL [Suspect]
     Indication: OPEN ANGLE GLAUCOMA
     Dosage: 1 GTT;BID;OPH
     Route: 047
     Dates: start: 20090119, end: 20090320
  2. GABAPENTIN [Concomitant]
  3. PRILOSEC [Concomitant]
  4. ASPIRIN [Concomitant]
  5. POTASSIUM CHLORIDE [Concomitant]
  6. FLORESTOR /00838001/ [Concomitant]
  7. MAGNESIUM OXIDE [Concomitant]
  8. PREDNISONE TAB [Concomitant]
  9. VICA FORTE [Concomitant]
  10. FEOSOL [Concomitant]
  11. VITAMIN A [Concomitant]
  12. VITAMIN B-12 [Concomitant]

REACTIONS (1)
  - HEADACHE [None]
